FAERS Safety Report 11535128 (Version 1)
Quarter: 2015Q3

REPORT INFORMATION
  Report Type: Spontaneous
  Country: US (occurrence: US)
  Receive Date: 20150922
  Receipt Date: 20150922
  Transmission Date: 20151125
  Serious: Yes (Other)
  Sender: FDA-Public Use
  Company Number: US-NPS_PHARMACEUTICALS-002537

PATIENT
  Sex: Female

DRUGS (1)
  1. NATPARA (PARATHYROID HORMONE) [Suspect]
     Active Substance: PARATHYROID HORMONE
     Indication: HYPOPARATHYROIDISM
     Route: 058
     Dates: start: 201507

REACTIONS (6)
  - Dyspnoea [Unknown]
  - Asthenia [Unknown]
  - Diarrhoea [Unknown]
  - Pharyngeal oedema [Unknown]
  - Palpitations [Unknown]
  - Hypertension [Unknown]

NARRATIVE: CASE EVENT DATE: 2015
